FAERS Safety Report 16776996 (Version 2)
Quarter: 2019Q3

REPORT INFORMATION
  Report Type: Report from Study
  Country: CO (occurrence: CO)
  Receive Date: 20190905
  Receipt Date: 20190926
  Transmission Date: 20191005
  Serious: Yes (Hospitalization)
  Sender: FDA-Public Use
  Company Number: CO-ASTELLAS-2019US035136

PATIENT
  Age: 37 Year
  Sex: Female
  Weight: 38 kg

DRUGS (10)
  1. MYCOPHENOLATE SODIUM [Concomitant]
     Active Substance: MYCOPHENOLATE SODIUM
     Indication: RENAL TRANSPLANT
     Dosage: 720 MG, TWICE DAILY (360 MG 2 CAPSULES AT 10AM AND 2 CAPSULES OF 360MG AT 10PM)
     Route: 048
     Dates: start: 20190730
  2. OMEPRAZOLE. [Concomitant]
     Active Substance: OMEPRAZOLE
     Indication: RENAL TRANSPLANT
     Dosage: 20 MG, ONCE DAILY (ONE CAPSULE AT 10AM)
     Route: 048
     Dates: start: 20190730
  3. VALGANCICLOVIR. [Concomitant]
     Active Substance: VALGANCICLOVIR
     Indication: PRODUCT USED FOR UNKNOWN INDICATION
     Dosage: 900 MG, ONCE DAILY (450 MG 2 CAPSULES AT 10PM)
     Route: 048
     Dates: start: 20190730
  4. TACROLIMUS. [Suspect]
     Active Substance: TACROLIMUS
     Indication: PANCREAS TRANSPLANT
     Dosage: 7 MG, ONCE DAILY (1 CAPSULE OF 5 MG AND 2 CAPSULES OF 1 MG)
     Route: 048
     Dates: start: 20190815, end: 20190829
  5. PREDNISOLONE. [Concomitant]
     Active Substance: PREDNISOLONE
     Indication: RENAL TRANSPLANT
     Route: 048
     Dates: start: 20190730
  6. ACETYLSALICYLIC ACID [Concomitant]
     Active Substance: ASPIRIN
     Indication: PRODUCT USED FOR UNKNOWN INDICATION
     Dosage: 1 MG, ONCED DAILY (1MG AFTER LUNCH)
     Route: 048
     Dates: start: 20190730
  7. TACROLIMUS. [Suspect]
     Active Substance: TACROLIMUS
     Indication: RENAL TRANSPLANT
     Dosage: 4 MG, ONCE DAILY (4 CAPSULES OF 1MG)
     Route: 048
     Dates: start: 20190730, end: 20190814
  8. TACROLIMUS. [Suspect]
     Active Substance: TACROLIMUS
     Dosage: 8 MG, ONCE DAILY (1 CAPSULE OF 5 MG AND 3  CAPSULES OF 1 MG)
     Route: 048
     Dates: start: 20190830
  9. SULFAMOXOLE W/TRIMETHOPRIM [Concomitant]
     Indication: RENAL TRANSPLANT
     Dosage: 1 CAPSULE OF 160/800MG MONDAY, WEDNESDAY AND FRIDAY AT 10AM
     Route: 048
     Dates: start: 20190730
  10. NYSTATIN. [Concomitant]
     Active Substance: NYSTATIN
     Indication: STOMATITIS
     Dosage: 10CC, EVERY 8 HOURS
     Route: 048
     Dates: start: 20190730

REACTIONS (5)
  - Urinary tract infection [Recovered/Resolved]
  - Urinary tract inflammation [Recovered/Resolved]
  - Gait inability [Recovered/Resolved]
  - Product use in unapproved indication [Unknown]
  - Laboratory test abnormal [Unknown]

NARRATIVE: CASE EVENT DATE: 20190812
